FAERS Safety Report 7349265-7 (Version None)
Quarter: 2011Q1

REPORT INFORMATION
  Report Type: 
  Country: None (occurrence: None)
  Receive Date: 20110304
  Receipt Date: 20110215
  Transmission Date: 20110831
  Serious: Yes (Death)
  Sender: FDA-Public Use
  Company Number: UTC-005331

PATIENT
  Age: 23 Year
  Sex: Female

DRUGS (5)
  1. REMODULIN [Suspect]
     Indication: PULMONARY ARTERIAL HYPERTENSION
     Dosage: SUBCUTANEOUS
     Route: 058
  2. WARFARIN [Concomitant]
  3. OXYGEN [Concomitant]
  4. ILOPROST [Concomitant]
  5. BOSENTAN [Concomitant]

REACTIONS (3)
  - RIGHT VENTRICULAR FAILURE [None]
  - SEPSIS [None]
  - PULMONARY ARTERIAL HYPERTENSION [None]
